FAERS Safety Report 10065291 (Version 3)
Quarter: 2014Q2

REPORT INFORMATION
  Report Type: Spontaneous
  Country: JP (occurrence: JP)
  Receive Date: 20140408
  Receipt Date: 20140422
  Transmission Date: 20141212
  Serious: Yes (Other)
  Sender: FDA-Public Use
  Company Number: JP-PFIZER INC-2014095632

PATIENT
  Age: 33 Year
  Sex: Male

DRUGS (6)
  1. LYRICA [Suspect]
     Indication: NEURALGIA
     Dosage: 75 MG/DAY
     Route: 048
     Dates: start: 20140403, end: 20140403
  2. LOXONIN [Concomitant]
  3. MUCOSTA [Concomitant]
  4. NEUROTROPIN [Concomitant]
  5. METHYCOBAL [Concomitant]
  6. TERNELIN [Concomitant]

REACTIONS (4)
  - Dysphonia [Recovered/Resolved]
  - VIIth nerve paralysis [Recovered/Resolved]
  - Pharyngeal oedema [Recovered/Resolved]
  - Laryngeal oedema [Recovered/Resolved]
